FAERS Safety Report 13032695 (Version 1)
Quarter: 2016Q4

REPORT INFORMATION
  Report Type: Spontaneous
  Country: US (occurrence: US)
  Receive Date: 20161215
  Receipt Date: 20161215
  Transmission Date: 20170207
  Serious: No
  Sender: FDA-Public Use
  Company Number: US-ALLERGAN-1674352US

PATIENT
  Age: 44 Year
  Sex: Female

DRUGS (1)
  1. VIBERZI [Suspect]
     Active Substance: ELUXADOLINE
     Indication: IRRITABLE BOWEL SYNDROME
     Dosage: 75 MG, UNK
     Route: 048

REACTIONS (4)
  - Myalgia [Unknown]
  - Muscle spasms [Recovered/Resolved]
  - Ocular hyperaemia [Recovered/Resolved]
  - Muscle twitching [Recovered/Resolved]
